FAERS Safety Report 20278772 (Version 1)
Quarter: 2022Q1

REPORT INFORMATION
  Report Type: Spontaneous
  Country: US (occurrence: US)
  Receive Date: 20220103
  Receipt Date: 20220103
  Transmission Date: 20220423
  Serious: Yes (Other)
  Sender: FDA-Public Use
  Company Number: US-INCYTE CORPORATION-2021IN012234

PATIENT

DRUGS (1)
  1. JAKAFI [Suspect]
     Active Substance: RUXOLITINIB
     Indication: Polycythaemia vera
     Dosage: 10 MILLIGRAM, BID
     Route: 048
     Dates: start: 201707

REACTIONS (4)
  - Cellulitis [Unknown]
  - Thrombosis [Unknown]
  - Skin atrophy [Unknown]
  - Skin laceration [Unknown]

NARRATIVE: CASE EVENT DATE: 20211001
